FAERS Safety Report 23760202 (Version 1)
Quarter: 2024Q2

REPORT INFORMATION
  Report Type: Spontaneous
  Country: FR (occurrence: FR)
  Receive Date: 20240419
  Receipt Date: 20240419
  Transmission Date: 20240716
  Serious: Yes (Hospitalization, Other)
  Sender: FDA-Public Use
  Company Number: FR-AFSSAPS-AN2024000461

PATIENT
  Age: 62 Year
  Sex: Male

DRUGS (2)
  1. ALLOPURINOL [Interacting]
     Active Substance: ALLOPURINOL
     Indication: Hyperuricaemia
     Dosage: UNK
     Route: 048
  2. AMOXICILLIN [Interacting]
     Active Substance: AMOXICILLIN
     Indication: Infection
     Dosage: UNK
     Route: 048
     Dates: start: 2022, end: 2022

REACTIONS (2)
  - Anaphylactic reaction [Recovered/Resolved]
  - Drug interaction [Recovered/Resolved]

NARRATIVE: CASE EVENT DATE: 20220101
